FAERS Safety Report 21185352 (Version 1)
Quarter: 2022Q3

REPORT INFORMATION
  Report Type: Spontaneous
  Country: US (occurrence: US)
  Receive Date: 20220808
  Receipt Date: 20220808
  Transmission Date: 20221027
  Serious: Yes (Other)
  Sender: FDA-Public Use
  Company Number: US-JNJFOC-20220758590

PATIENT
  Age: 58 Year
  Sex: Female
  Weight: 104.33 kg

DRUGS (2)
  1. BENADRYL [Suspect]
     Active Substance: DIPHENHYDRAMINE HYDROCHLORIDE
     Indication: Antiallergic therapy
     Dosage: TOOK IT TWICE 3 DAYS APART
     Route: 048
  2. CLARITIN [Suspect]
     Active Substance: LORATADINE
     Indication: Antiallergic therapy
     Route: 065

REACTIONS (2)
  - Haemorrhage [Unknown]
  - Dry skin [Unknown]
